FAERS Safety Report 7545560-7 (Version None)
Quarter: 2011Q2

REPORT INFORMATION
  Report Type: 
  Country: None (occurrence: None)
  Receive Date: 20110613
  Receipt Date: 20110613
  Transmission Date: 20111010
  Serious: Yes (Hospitalization)
  Sender: FDA-Public Use
  Company Number: None

PATIENT
  Age: 60 Year
  Sex: Male
  Weight: 78.8 kg

DRUGS (1)
  1. DIGOXIN [Suspect]
     Indication: ATRIAL FIBRILLATION
     Dosage: 0.5 MG EVERY DAY PO
     Route: 048

REACTIONS (7)
  - NAUSEA [None]
  - DIARRHOEA [None]
  - VOMITING [None]
  - PALPITATIONS [None]
  - TACHYCARDIA [None]
  - NIGHTMARE [None]
  - TOXICITY TO VARIOUS AGENTS [None]
